FAERS Safety Report 7219159-6 (Version None)
Quarter: 2011Q1

REPORT INFORMATION
  Report Type: 
  Country: None (occurrence: None)
  Receive Date: 20110111
  Receipt Date: 20101228
  Transmission Date: 20110831
  Serious: Yes (Death, Hospitalization)
  Sender: FDA-Public Use
  Company Number: US-CELGENEUS-163-21880-10091302

PATIENT
  Sex: Male

DRUGS (19)
  1. ASPIRIN [Concomitant]
     Indication: ANTICOAGULANT THERAPY
     Route: 048
     Dates: start: 20100101, end: 20100913
  2. PROTONIX [Concomitant]
     Route: 048
     Dates: start: 20100101, end: 20100913
  3. MUCINEX [Concomitant]
     Indication: UPPER RESPIRATORY TRACT CONGESTION
     Route: 048
     Dates: start: 20100101, end: 20100913
  4. REVLIMID [Suspect]
     Route: 048
     Dates: start: 20100809, end: 20100101
  5. NITROFURANTOIN [Concomitant]
     Indication: INFECTION
     Route: 048
     Dates: start: 20100101
  6. LOPRESSOR [Concomitant]
     Indication: BLOOD PRESSURE
     Route: 048
     Dates: start: 20100101, end: 20100913
  7. NITROGLYCERIN [Concomitant]
     Route: 048
     Dates: start: 20100101
  8. DOK CAP [Concomitant]
     Route: 048
     Dates: start: 20100101, end: 20100101
  9. WARFARIN [Concomitant]
     Indication: ANTICOAGULANT THERAPY
     Route: 048
     Dates: start: 20100101, end: 20100913
  10. LOSARTAN POTASSIUM AND HYDROCHLOROTHIAZIDE [Concomitant]
     Indication: BLOOD PRESSURE
     Dosage: 50/125MG
     Route: 048
     Dates: start: 20100101, end: 20100913
  11. NITROGLYCERIN [Concomitant]
     Indication: BLOOD PRESSURE
     Route: 048
     Dates: start: 20100101, end: 20100913
  12. LASIX [Concomitant]
     Indication: FLUID RETENTION
     Route: 048
     Dates: start: 20100101, end: 20100913
  13. NORVASC [Concomitant]
     Indication: BLOOD PRESSURE
     Route: 048
     Dates: start: 20100101, end: 20100913
  14. POTASSIUM CHLORIDE [Concomitant]
     Indication: SUPPLEMENTATION THERAPY
     Route: 048
     Dates: start: 20100101, end: 20100913
  15. DETROL LA [Concomitant]
     Indication: URINARY RETENTION
     Route: 048
     Dates: start: 20100101, end: 20100913
  16. MULTAQ [Concomitant]
     Indication: HEART RATE
     Route: 048
     Dates: start: 20100101, end: 20100913
  17. IRON [Concomitant]
     Indication: SUPPLEMENTATION THERAPY
     Route: 048
     Dates: start: 20100101, end: 20100913
  18. TAMSULOSIN [Concomitant]
     Indication: URINARY RETENTION
     Route: 048
     Dates: start: 20100101, end: 20100913
  19. CIPROFLAXACIN [Concomitant]
     Indication: INFECTION
     Route: 048
     Dates: start: 20100101, end: 20100913

REACTIONS (2)
  - SEPSIS [None]
  - PNEUMONIA [None]
